FAERS Safety Report 10879489 (Version 20)
Quarter: 2018Q2

REPORT INFORMATION
  Report Type: Report from Study
  Country: GB (occurrence: GB)
  Receive Date: 20150302
  Receipt Date: 20180504
  Transmission Date: 20180711
  Serious: Yes (Death, Hospitalization, Other)
  Sender: FDA-Public Use
  Company Number: GB-INCYTE CORPORATION-2014IN003888

PATIENT

DRUGS (21)
  1. CHOLECALCIFEROL [Concomitant]
     Active Substance: CHOLECALCIFEROL
     Indication: MYELOFIBROSIS
     Dosage: 1.25 G, BID
     Route: 048
     Dates: start: 20120723
  2. LACTULOSE. [Concomitant]
     Active Substance: LACTULOSE
     Dosage: 10/20 ML BD PRN
     Route: 065
     Dates: start: 20071127
  3. JAKAVI [Suspect]
     Active Substance: RUXOLITINIB
     Indication: MYELOFIBROSIS
     Dosage: 10 MG, BID
     Route: 048
     Dates: start: 20120313
  4. JAKAVI [Suspect]
     Active Substance: RUXOLITINIB
     Dosage: UNK
     Route: 048
     Dates: start: 20141226, end: 20141228
  5. COCODAMOL [Concomitant]
     Active Substance: ACETAMINOPHEN\CODEINE PHOSPHATE
     Indication: MYELOFIBROSIS
     Dosage: QD
     Route: 048
     Dates: start: 20080225, end: 20141223
  6. OMEPRAZOLE. [Concomitant]
     Active Substance: OMEPRAZOLE
     Indication: VARICES OESOPHAGEAL
     Dosage: 20 MG, QD
     Route: 048
     Dates: start: 20110601
  7. OMEPRAZOLE. [Concomitant]
     Active Substance: OMEPRAZOLE
     Indication: VARICES OESOPHAGEAL
  8. JAKAVI [Suspect]
     Active Substance: RUXOLITINIB
     Dosage: 10 MG, BID
     Route: 048
     Dates: start: 20150211
  9. CARBOMER [Concomitant]
     Active Substance: CARBOMER
     Indication: DRY EYE
     Dosage: 1 DRP, (TDS/QDS)
     Route: 065
     Dates: start: 20110820
  10. PROPRANOLOL [Concomitant]
     Active Substance: PROPRANOLOL HYDROCHLORIDE
     Indication: VARICES OESOPHAGEAL
     Dosage: 40 MG, TDS
     Route: 048
     Dates: start: 20110601
  11. TICAGRELOR. [Concomitant]
     Active Substance: TICAGRELOR
     Indication: MYOCARDIAL ISCHAEMIA
     Dosage: UNK
     Route: 065
  12. ADALAT CC [Concomitant]
     Active Substance: NIFEDIPINE
     Indication: MYOCARDIAL ISCHAEMIA
     Dosage: 60 MG, QD
     Route: 048
     Dates: start: 20121221
  13. JAKAVI [Suspect]
     Active Substance: RUXOLITINIB
     Dosage: UNK
     Route: 048
     Dates: start: 20150215
  14. TICAGRELOR. [Concomitant]
     Active Substance: TICAGRELOR
     Indication: MYOCARDIAL ISCHAEMIA
     Dosage: UNK
     Route: 065
  15. ACIFOL//FOLIC ACID [Concomitant]
     Active Substance: FOLIC ACID
     Indication: PLASMA CELL MYELOMA
     Dosage: 5 MG, BID
     Route: 048
     Dates: start: 20111026
  16. PROPRANOLOL [Concomitant]
     Active Substance: PROPRANOLOL HYDROCHLORIDE
     Indication: VARICES OESOPHAGEAL
  17. JAKAVI [Suspect]
     Active Substance: RUXOLITINIB
     Dosage: UNK
     Route: 048
     Dates: start: 20141223
  18. LOSARTAN. [Concomitant]
     Active Substance: LOSARTAN
     Dosage: 100 MG, QD
     Route: 048
  19. LACTULOSE. [Concomitant]
     Active Substance: LACTULOSE
     Indication: PELVIC PAIN
     Dosage: 10/20 ML BD PRN
     Route: 065
     Dates: start: 20071127
  20. ASPIRIN//ACETYLSALICYLIC ACID [Concomitant]
     Active Substance: ASPIRIN
     Indication: MYOCARDIAL ISCHAEMIA
     Dosage: 75 MG, QD
     Route: 048
     Dates: start: 20121221
  21. LOSARTAN. [Concomitant]
     Active Substance: LOSARTAN
     Indication: PRODUCT USED FOR UNKNOWN INDICATION
     Dosage: 100 MG, QD
     Route: 048

REACTIONS (49)
  - Oesophageal varices haemorrhage [Recovered/Resolved with Sequelae]
  - Fall [Unknown]
  - Squamous cell carcinoma [Recovered/Resolved]
  - Second primary malignancy [Recovered/Resolved]
  - Anaemia [Recovered/Resolved with Sequelae]
  - Oesophageal varices haemorrhage [Recovered/Resolved with Sequelae]
  - Oesophageal varices haemorrhage [Recovered/Resolved with Sequelae]
  - Pyrexia [Unknown]
  - Pulmonary hypertension [Not Recovered/Not Resolved]
  - Oesophageal varices haemorrhage [Recovered/Resolved with Sequelae]
  - Oesophageal varices haemorrhage [Recovered/Resolved with Sequelae]
  - Anaemia [Recovered/Resolved with Sequelae]
  - Anaemia [Recovered/Resolved with Sequelae]
  - Contusion [Recovered/Resolved]
  - Dysuria [Unknown]
  - Thrombocytopenia [Recovered/Resolved]
  - Thrombocytopenia [Recovered/Resolved]
  - Anaemia [Recovered/Resolved with Sequelae]
  - Thrombocytopenia [Recovered/Resolved]
  - Thrombocytopenia [Recovered/Resolved]
  - Urinary tract infection [Recovered/Resolved]
  - Oesophageal varices haemorrhage [Recovered/Resolved with Sequelae]
  - Anaemia [Recovered/Resolved with Sequelae]
  - Oesophageal varices haemorrhage [Recovered/Resolved with Sequelae]
  - Basal cell carcinoma [Recovered/Resolved]
  - Contusion [Recovered/Resolved]
  - Urinary tract infection [Recovered/Resolved]
  - Anaemia [Recovered/Resolved with Sequelae]
  - Anaemia [Recovered/Resolved with Sequelae]
  - Oesophageal varices haemorrhage [Recovered/Resolved with Sequelae]
  - Epistaxis [Recovered/Resolved]
  - Epistaxis [Recovered/Resolved]
  - Upper respiratory tract infection [Recovered/Resolved]
  - Anaemia [Recovered/Resolved with Sequelae]
  - Anaemia [Recovered/Resolved with Sequelae]
  - Oesophageal varices haemorrhage [Recovered/Resolved with Sequelae]
  - Anaemia [Recovered/Resolved with Sequelae]
  - Vessel puncture site haemorrhage [Recovered/Resolved]
  - Contusion [Recovered/Resolved]
  - Neutropenic sepsis [Recovered/Resolved]
  - Petechiae [Recovered/Resolved]
  - Increased tendency to bruise [Recovered/Resolved]
  - Thrombocytopenia [Recovered/Resolved]
  - Oesophageal varices haemorrhage [Recovered/Resolved with Sequelae]
  - Anaemia [Recovered/Resolved with Sequelae]
  - Oesophageal varices haemorrhage [Recovered/Resolved with Sequelae]
  - Confusional state [Unknown]
  - Lower respiratory tract infection [Recovered/Resolved]
  - Myelofibrosis [Fatal]

NARRATIVE: CASE EVENT DATE: 20140716
